FAERS Safety Report 24174665 (Version 1)
Quarter: 2024Q3

REPORT INFORMATION
  Report Type: Spontaneous
  Country: US (occurrence: US)
  Receive Date: 20240805
  Receipt Date: 20240805
  Transmission Date: 20241016
  Serious: No
  Sender: PFIZER
  Company Number: US-PFIZER INC-202400227636

PATIENT
  Age: 53 Year
  Sex: Female

DRUGS (3)
  1. PAXLOVID [Suspect]
     Active Substance: NIRMATRELVIR\RITONAVIR
     Indication: COVID-19 treatment
     Dosage: UNK
     Dates: start: 20240723, end: 20240726
  2. ESTROGENS [Concomitant]
     Active Substance: ESTROGENS
     Dosage: UNK
  3. PROGESTERONE [Concomitant]
     Active Substance: PROGESTERONE
     Dosage: UNK

REACTIONS (1)
  - Incorrect product administration duration [Unknown]
